FAERS Safety Report 5715473-1 (Version None)
Quarter: 2008Q2

REPORT INFORMATION
  Report Type: 
  Country: None (occurrence: None)
  Receive Date: 20080422
  Receipt Date: 20080416
  Transmission Date: 20081010
  Serious: Yes (Death, Other)
  Sender: FDA-Public Use
  Company Number: 163-21880-08041238

PATIENT
  Age: 62 Year
  Sex: Female

DRUGS (4)
  1. REVLIMID [Suspect]
     Indication: LYMPHOPROLIFERATIVE DISORDER
     Dosage: 25 MG, ORAL; 10 MG, EVERY OTHER DAY, ORAL; 10 MG, TWICE A WEEK, ORAL
     Route: 048
  2. REVLIMID [Suspect]
     Indication: T-CELL TYPE ACUTE LEUKAEMIA
     Dosage: 25 MG, ORAL; 10 MG, EVERY OTHER DAY, ORAL; 10 MG, TWICE A WEEK, ORAL
     Route: 048
  3. CYCLOSPORINE [Concomitant]
  4. PREDNISONE TAB [Concomitant]

REACTIONS (3)
  - DISEASE PROGRESSION [None]
  - LEUKAEMIC INFILTRATION HEPATIC [None]
  - MUSCLE SPASMS [None]
